FAERS Safety Report 21444828 (Version 1)
Quarter: 2022Q4

REPORT INFORMATION
  Report Type: Spontaneous
  Country: US (occurrence: US)
  Receive Date: 20221012
  Receipt Date: 20221012
  Transmission Date: 20230112
  Serious: No
  Sender: FDA-Public Use
  Company Number: US-JNJFOC-20221007179

PATIENT
  Age: 76 Year
  Sex: Male
  Weight: 74.910 kg

DRUGS (1)
  1. ERLEADA [Suspect]
     Active Substance: APALUTAMIDE
     Indication: Prostate cancer
     Route: 048
     Dates: start: 20220210

REACTIONS (2)
  - Paraesthesia [Unknown]
  - Hot flush [Unknown]

NARRATIVE: CASE EVENT DATE: 20220210
